FAERS Safety Report 4982557-5 (Version None)
Quarter: 2006Q2

REPORT INFORMATION
  Report Type: 
  Country: None (occurrence: None)
  Receive Date: 20060421
  Receipt Date: 20060405
  Transmission Date: 20061013
  Serious: Yes (Other)
  Sender: FDA-Public Use
  Company Number: 8641

PATIENT
  Sex: Male

DRUGS (4)
  1. LIDOCAINE [Suspect]
     Indication: LOCAL ANAESTHESIA
     Dosage: 2 CARTRIDGES
  2. LIDOCAINE [Suspect]
     Indication: TOOTH DISORDER
     Dosage: 2 CARTRIDGES
  3. SEPTOCAINE WITH EPINEPHRINE 1:100,000 [Suspect]
     Indication: LOCAL ANAESTHESIA
     Dosage: 1 CARTRIDGE
  4. SEPTOCAINE WITH EPINEPHRINE 1:100,000 [Suspect]
     Indication: TOOTH DISORDER
     Dosage: 1 CARTRIDGE

REACTIONS (1)
  - HYPOAESTHESIA [None]
